FAERS Safety Report 4280077-7 (Version None)
Quarter: 2004Q1

REPORT INFORMATION
  Report Type: 
  Country: None (occurrence: None)
  Receive Date: 20040123
  Receipt Date: 20040112
  Transmission Date: 20041129
  Serious: Yes (Hospitalization)
  Sender: FDA-Public Use
  Company Number: 2004CG00091

PATIENT
  Age: 70 Year
  Sex: Female

DRUGS (4)
  1. MOPRAL [Suspect]
     Dosage: 40 MG DAILY PO
     Route: 048
     Dates: end: 20031124
  2. ATARAX [Concomitant]
  3. CORDARONE [Concomitant]
  4. INSULIN ACTRAPID ^NOVO NORDISK^ [Concomitant]

REACTIONS (9)
  - ANTICOAGULANT THERAPY [None]
  - GASTROINTESTINAL HAEMORRHAGE [None]
  - INTERCAPILLARY GLOMERULOSCLEROSIS [None]
  - KIDNEY SMALL [None]
  - NEUTROPENIA [None]
  - OVERDOSE [None]
  - RENAL FAILURE CHRONIC [None]
  - RENAL INTERSTITIAL FIBROSIS [None]
  - RENAL TUBULAR NECROSIS [None]
